FAERS Safety Report 5271359-0 (Version None)
Quarter: 2007Q1

REPORT INFORMATION
  Report Type: 
  Country: None (occurrence: None)
  Receive Date: 20070321
  Receipt Date: 20070310
  Transmission Date: 20070707
  Serious: Yes (Hospitalization)
  Sender: FDA-Public Use
  Company Number: US-ROCHE-486729

PATIENT
  Age: 47 Year
  Sex: Male
  Weight: 120.2 kg

DRUGS (2)
  1. PEGASYS [Suspect]
     Route: 065
     Dates: start: 20070209
  2. RIBAVIRIN [Suspect]
     Route: 065
     Dates: start: 20070209

REACTIONS (5)
  - AMMONIA INCREASED [None]
  - HEPATOTOXICITY [None]
  - LOSS OF CONSCIOUSNESS [None]
  - PNEUMONIA [None]
  - VIRAL LOAD INCREASED [None]
